FAERS Safety Report 10235326 (Version 1)
Quarter: 2014Q2

REPORT INFORMATION
  Report Type: Spontaneous
  Country: US (occurrence: US)
  Receive Date: 20140613
  Receipt Date: 20140613
  Transmission Date: 20141212
  Serious: No
  Sender: FDA-Public Use
  Company Number: US-PFIZER INC-2014161077

PATIENT
  Age: 76 Year
  Sex: Female

DRUGS (1)
  1. FLAGYL [Suspect]
     Dosage: UNK

REACTIONS (3)
  - Drug hypersensitivity [Unknown]
  - Dysgeusia [Unknown]
  - Nausea [Unknown]
